FAERS Safety Report 18673828 (Version 1)
Quarter: 2020Q4

REPORT INFORMATION
  Report Type: Report from Study
  Country: IT (occurrence: IT)
  Receive Date: 20201229
  Receipt Date: 20201229
  Transmission Date: 20210114
  Serious: Yes (Hospitalization)
  Sender: FDA-Public Use
  Company Number: IT-TEVA-2020-IT-1862603

PATIENT
  Age: 68 Year
  Sex: Female

DRUGS (5)
  1. HUMIRA [Suspect]
     Active Substance: ADALIMUMAB
     Indication: RHEUMATOID ARTHRITIS
     Dosage: 40 MG
     Dates: start: 20101201, end: 20201005
  2. METHOTREXATE 2,5 MG COMPRESSE [Suspect]
     Active Substance: METHOTREXATE
     Indication: RHEUMATOID ARTHRITIS
     Dosage: 7.5 MG
     Dates: start: 20070101, end: 20201005
  3. TACHIPIRINA 1000 MG COMPRESSE [Concomitant]
     Active Substance: ACETAMINOPHEN
     Indication: ARTHRALGIA
     Dosage: 2000 MG
  4. DIBASE [Concomitant]
     Active Substance: CHOLECALCIFEROL
     Dosage: 25 KU
  5. FOLINA [Concomitant]
     Dosage: 5 MG

REACTIONS (2)
  - Coronavirus infection [Recovering/Resolving]
  - Pyrexia [Recovering/Resolving]

NARRATIVE: CASE EVENT DATE: 20201005
